FAERS Safety Report 23129993 (Version 1)
Quarter: 2023Q4

REPORT INFORMATION
  Report Type: Spontaneous
  Country: US (occurrence: US)
  Receive Date: 20231031
  Receipt Date: 20231031
  Transmission Date: 20240110
  Serious: Yes (Disabling)
  Sender: FDA-Public Use
  Company Number: US-UPSHER-SMITH LABORATORIES, LLC-2023USL00894

PATIENT
  Sex: Male

DRUGS (1)
  1. MOXIFLOXACIN [Suspect]
     Active Substance: MOXIFLOXACIN
     Dosage: UNK
     Dates: start: 202302

REACTIONS (2)
  - Eye infection bacterial [Recovered/Resolved with Sequelae]
  - Eye excision [Recovered/Resolved with Sequelae]

NARRATIVE: CASE EVENT DATE: 20230101
